FAERS Safety Report 6111022-7 (Version None)
Quarter: 2009Q1

REPORT INFORMATION
  Report Type: 
  Country: None (occurrence: None)
  Receive Date: 20090310
  Receipt Date: 20090310
  Transmission Date: 20090719
  Serious: Yes (Other)
  Sender: FDA-Public Use
  Company Number: None

PATIENT
  Sex: Female
  Weight: 64.8644 kg

DRUGS (6)
  1. GABAPENTIN [Suspect]
     Indication: HERPES ZOSTER
     Dosage: 300 MG 1 - QID JAN 09 DOSAGE 1 TID ON 3-6-09 U-P'D TO QID AND REACTION OCCURED
     Dates: start: 20090101
  2. GABAPENTIN [Suspect]
     Indication: HYPOAESTHESIA
     Dosage: 300 MG 1 - QID JAN 09 DOSAGE 1 TID ON 3-6-09 U-P'D TO QID AND REACTION OCCURED
     Dates: start: 20090101
  3. GABAPENTIN [Suspect]
     Indication: PAIN IN EXTREMITY
     Dosage: 300 MG 1 - QID JAN 09 DOSAGE 1 TID ON 3-6-09 U-P'D TO QID AND REACTION OCCURED
     Dates: start: 20090101
  4. GABAPENTIN [Suspect]
     Indication: HERPES ZOSTER
     Dosage: 300 MG 1 - QID JAN 09 DOSAGE 1 TID ON 3-6-09 U-P'D TO QID AND REACTION OCCURED
     Dates: start: 20090306
  5. GABAPENTIN [Suspect]
     Indication: HYPOAESTHESIA
     Dosage: 300 MG 1 - QID JAN 09 DOSAGE 1 TID ON 3-6-09 U-P'D TO QID AND REACTION OCCURED
     Dates: start: 20090306
  6. GABAPENTIN [Suspect]
     Indication: PAIN IN EXTREMITY
     Dosage: 300 MG 1 - QID JAN 09 DOSAGE 1 TID ON 3-6-09 U-P'D TO QID AND REACTION OCCURED
     Dates: start: 20090306

REACTIONS (2)
  - JOINT SWELLING [None]
  - OEDEMA PERIPHERAL [None]
